FAERS Safety Report 10497760 (Version 2)
Quarter: 2014Q4

REPORT INFORMATION
  Report Type: Spontaneous
  Country: US (occurrence: None)
  Receive Date: 20141002
  Receipt Date: 20141021
  Transmission Date: 20150528
  Serious: Yes (Hospitalization)
  Sender: FDA-Public Use
  Company Number: 2014-US-012584

PATIENT
  Age: 40 Year
  Sex: Male

DRUGS (5)
  1. MARINOL [Concomitant]
     Active Substance: DRONABINOL
  2. PRIALT [Suspect]
     Active Substance: ZICONOTIDE ACETATE
     Indication: ABDOMINAL PAIN
     Dosage: UNK UG, QH, INTRATHECAL ?
     Route: 055
     Dates: start: 201406
  3. NUCYNTA (TAPENTADOL HYDROCHLORIDE) [Concomitant]
  4. DILAUDID [Concomitant]
     Active Substance: HYDROMORPHONE HYDROCHLORIDE
  5. PRIALT [Suspect]
     Active Substance: ZICONOTIDE ACETATE
     Indication: PHANTOM PAIN
     Dosage: UNK UG, QH, INTRATHECAL ?
     Route: 055
     Dates: start: 201406

REACTIONS (5)
  - Hallucination [None]
  - Dyskinesia [None]
  - Drug withdrawal syndrome [None]
  - Toxicity to various agents [None]
  - Electrolyte imbalance [None]

NARRATIVE: CASE EVENT DATE: 20140924
